FAERS Safety Report 17110697 (Version 3)
Quarter: 2021Q1

REPORT INFORMATION
  Report Type: Spontaneous
  Country: US (occurrence: US)
  Receive Date: 20191204
  Receipt Date: 20210203
  Transmission Date: 20210419
  Serious: No
  Sender: FDA-Public Use
  Company Number: US-PFIZER INC-2019492224

PATIENT
  Age: 35 Year
  Sex: Female
  Weight: 62.6 kg

DRUGS (3)
  1. SUTENT [Suspect]
     Active Substance: SUNITINIB MALATE
     Indication: MALIGNANT MAST CELL NEOPLASM
     Dosage: 12.5 MG, 1X/DAY
     Route: 048
  2. SUTENT [Suspect]
     Active Substance: SUNITINIB MALATE
     Indication: MASTOCYTOSIS
  3. EPIPEN [Concomitant]
     Active Substance: EPINEPHRINE
     Indication: MASTOCYTOSIS
     Dosage: 0.3 MG, ADULT AUTO?INJECTOR
     Dates: start: 2014

REACTIONS (3)
  - Malaise [Recovering/Resolving]
  - Product dose omission issue [Unknown]
  - Off label use [Unknown]

NARRATIVE: CASE EVENT DATE: 20191124
